FAERS Safety Report 15673865 (Version 1)
Quarter: 2018Q4

REPORT INFORMATION
  Report Type: Spontaneous
  Country: US (occurrence: US)
  Receive Date: 20181129
  Receipt Date: 20181129
  Transmission Date: 20190205
  Serious: Yes (Hospitalization)
  Sender: FDA-Public Use
  Company Number: US-ROCHE-2221613

PATIENT
  Sex: Female

DRUGS (2)
  1. KLONOPIN [Suspect]
     Active Substance: CLONAZEPAM
     Dosage: 8MG DAILY
     Route: 065
  2. KLONOPIN [Suspect]
     Active Substance: CLONAZEPAM
     Indication: ANXIETY
     Dosage: 3-4MG A DAY
     Route: 065

REACTIONS (11)
  - Aggression [Unknown]
  - Dysphemia [Unknown]
  - Abnormal behaviour [Unknown]
  - Drug withdrawal syndrome [Unknown]
  - Disturbance in attention [Unknown]
  - Insomnia [Unknown]
  - Skin atrophy [Unknown]
  - Dyspnoea [Unknown]
  - Faeces discoloured [Unknown]
  - Amnesia [Unknown]
  - Depression [Unknown]
